FAERS Safety Report 23123094 (Version 1)
Quarter: 2023Q4

REPORT INFORMATION
  Report Type: Spontaneous
  Country: US (occurrence: US)
  Receive Date: 20231030
  Receipt Date: 20231030
  Transmission Date: 20240110
  Serious: No
  Sender: FDA-Public Use
  Company Number: US-ABBVIE-5462015

PATIENT
  Sex: Male
  Weight: 84 kg

DRUGS (1)
  1. KADIAN [Suspect]
     Active Substance: MORPHINE SULFATE
     Indication: Product used for unknown indication
     Dosage: STRENGTH 10MG; EXTENDED-RELEASE CAPSULES
     Route: 048
     Dates: start: 2016, end: 2016

REACTIONS (3)
  - Heart rate increased [Recovered/Resolved]
  - Tremor [Recovered/Resolved]
  - Anxiety [Recovered/Resolved]

NARRATIVE: CASE EVENT DATE: 20160101
